FAERS Safety Report 11306458 (Version 1)
Quarter: 2015Q3

REPORT INFORMATION
  Report Type: Spontaneous
  Country: US (occurrence: US)
  Receive Date: 20150723
  Receipt Date: 20150723
  Transmission Date: 20151125
  Serious: No
  Sender: FDA-Public Use
  Company Number: US-PFIZER INC-2015242960

PATIENT
  Age: 71 Year
  Sex: Female
  Weight: 64 kg

DRUGS (4)
  1. LYRICA [Suspect]
     Active Substance: PREGABALIN
     Indication: TREMOR
     Dosage: 2 DF, 4X/DAY
  2. LYRICA [Suspect]
     Active Substance: PREGABALIN
     Dosage: 1 DF, 2X/DAY. 1 PILL IN THE MORNING AND 1 PILL AT NIGHT
  3. LYRICA [Suspect]
     Active Substance: PREGABALIN
     Dosage: ONE PILL IN THE MORNING AND TWO PILLS AT NIGHT
  4. LYRICA [Suspect]
     Active Substance: PREGABALIN
     Indication: FIBROMYALGIA
     Dosage: 2 DF, 2X/DAY

REACTIONS (1)
  - Therapeutic response unexpected [Unknown]
